FAERS Safety Report 5559077-2 (Version None)
Quarter: 2007Q4

REPORT INFORMATION
  Report Type: 
  Country: None (occurrence: None)
  Receive Date: 20071214
  Receipt Date: 20070913
  Transmission Date: 20080405
  Serious: No
  Sender: FDA-Public Use
  Company Number: US-ABBOTT-07P-163-0417469-00

PATIENT
  Sex: Female
  Weight: 45.854 kg

DRUGS (14)
  1. HUMIRA [Suspect]
     Indication: RHEUMATOID ARTHRITIS
     Route: 058
     Dates: start: 20050101, end: 20050101
  2. HUMIRA [Suspect]
     Dates: start: 20050101, end: 20060101
  3. HUMIRA [Suspect]
     Dosage: PEN
     Dates: start: 20060101
  4. PREDNISONE [Concomitant]
     Indication: RHEUMATOID ARTHRITIS
     Dosage: LTERNATE 2.5MG AND 3MG EVERY OTHER DAY
     Route: 048
  5. METHOTREXATE [Concomitant]
     Indication: RHEUMATOID ARTHRITIS
     Route: 048
  6. ALENDRONATE SODIUM [Concomitant]
     Indication: OSTEOPOROSIS
     Route: 048
  7. RABEPRAZOLE SODIUM [Concomitant]
     Indication: GASTROOESOPHAGEAL REFLUX DISEASE
     Route: 048
  8. RALOXIFENE HYDROCHLORIDE [Concomitant]
     Indication: MINERAL SUPPLEMENTATION
     Route: 048
  9. FOLIC ACID [Concomitant]
     Indication: IMMUNODEFICIENCY
     Route: 048
  10. TRAZODONE HCL [Concomitant]
     Indication: RELAXATION THERAPY
     Route: 048
  11. ROSUVASTATIN [Concomitant]
     Indication: BLOOD CHOLESTEROL INCREASED
     Route: 048
  12. ESCITALOPRAM OXALATE [Concomitant]
     Indication: ANXIETY
     Dosage: ALTERNATE 2.5MG WITH 5MG EVERY OTHER DAY
     Route: 048
  13. CEVIMELINE HYDROCHLORIDE [Concomitant]
     Indication: DRY EYE
     Route: 048
  14. CEVIMELINE HYDROCHLORIDE [Concomitant]
     Indication: DRY MOUTH

REACTIONS (2)
  - ARTHRALGIA [None]
  - DRUG INEFFECTIVE [None]
